FAERS Safety Report 17939185 (Version 2)
Quarter: 2020Q3

REPORT INFORMATION
  Report Type: Spontaneous
  Country: JP (occurrence: JP)
  Receive Date: 20200624
  Receipt Date: 20200922
  Transmission Date: 20201103
  Serious: Yes (Hospitalization)
  Sender: FDA-Public Use
  Company Number: JP-JNJFOC-20200626660

PATIENT
  Age: 34 Year
  Sex: Male

DRUGS (2)
  1. STELARA [Suspect]
     Active Substance: USTEKINUMAB
     Dosage: UNKNOWN ?USTEKINUMAB(GENETICAL RECOMBINATION):45 MG
     Route: 058
     Dates: start: 2020, end: 2020
  2. STELARA [Suspect]
     Active Substance: USTEKINUMAB
     Indication: CROHN^S DISEASE
     Dosage: UNKNOWN?USTEKINUMAB(GENETICAL RECOMBINATION):130 MG
     Route: 042
     Dates: start: 20200220, end: 20200220

REACTIONS (1)
  - Enterovesical fistula [Unknown]

NARRATIVE: CASE EVENT DATE: 20200614
